FAERS Safety Report 9616835 (Version 1)
Quarter: 2013Q4

REPORT INFORMATION
  Report Type: Spontaneous
  Country: GB (occurrence: GB)
  Receive Date: 20131011
  Receipt Date: 20131011
  Transmission Date: 20140711
  Serious: Yes (Other)
  Sender: FDA-Public Use
  Company Number: GB-TEVA-436526ISR

PATIENT
  Age: 72 Year
  Sex: Male

DRUGS (7)
  1. SIMVASTATIN [Suspect]
     Dosage: AT NIGHT
  2. LISINOPRIL [Interacting]
     Indication: HYPERTENSION
  3. AMLODIPINE [Interacting]
     Indication: HYPERTENSION
  4. RANITIDINE [Concomitant]
  5. ATENOLOL [Concomitant]
  6. ATORVASTATIN [Concomitant]
  7. DOXAZOSIN [Concomitant]
     Dosage: INCREASED FROM 2MG TO 4MG THEN BACK TO 2MG.

REACTIONS (7)
  - Myalgia [Unknown]
  - Arthralgia [Unknown]
  - Malaise [Unknown]
  - Drug interaction [Unknown]
  - Blood glucose increased [Unknown]
  - White blood cell count increased [Unknown]
  - Orthostatic hypotension [Unknown]
